FAERS Safety Report 24915717 (Version 1)
Quarter: 2025Q1

REPORT INFORMATION
  Report Type: Report from Study
  Country: CA (occurrence: CA)
  Receive Date: 20250203
  Receipt Date: 20250203
  Transmission Date: 20250408
  Serious: Yes (Hospitalization, Other)
  Sender: ABBVIE
  Company Number: CA-ABBVIE-6108843

PATIENT
  Age: 65 Year
  Sex: Male

DRUGS (4)
  1. VENCLEXTA [Suspect]
     Active Substance: VENETOCLAX
     Indication: Acute myeloid leukaemia
     Dosage: FORM STRENGTH: 50 MG
     Route: 048
     Dates: start: 20231108
  2. AZACITIDINE [Concomitant]
     Active Substance: AZACITIDINE
     Indication: Product used for unknown indication
  3. LEVOFLOXACIN [Concomitant]
     Active Substance: LEVOFLOXACIN
     Indication: Product used for unknown indication
  4. LASIX [Concomitant]
     Active Substance: FUROSEMIDE
     Indication: Product used for unknown indication
     Route: 042

REACTIONS (11)
  - Anal abscess [Unknown]
  - Acute kidney injury [Unknown]
  - Abdominal discomfort [Unknown]
  - Chromaturia [Unknown]
  - Anal fistula infection [Unknown]
  - Superinfection [Unknown]
  - Dermatitis [Unknown]
  - Debridement [Unknown]
  - Anal sphincterotomy [Unknown]
  - Urine odour abnormal [Unknown]
  - Anal fistula [Unknown]

NARRATIVE: CASE EVENT DATE: 20250108
